FAERS Safety Report 9685209 (Version 1)
Quarter: 2013Q4

REPORT INFORMATION
  Report Type: Spontaneous
  Country: DE (occurrence: DE)
  Receive Date: 20131113
  Receipt Date: 20131113
  Transmission Date: 20140711
  Serious: Yes (Other)
  Sender: FDA-Public Use
  Company Number: DE-AMGEN-DEUSP2013079392

PATIENT
  Sex: Male

DRUGS (14)
  1. NEULASTA [Suspect]
     Indication: B-CELL LYMPHOMA
     Dosage: 6 MG, Q2WK
     Route: 058
     Dates: start: 20130727
  2. RITUXIMAB [Concomitant]
     Indication: B-CELL LYMPHOMA
     Dosage: 750 MG, Q2WK
     Route: 042
     Dates: start: 20130719
  3. CYCLOPHOSPHAMIDE [Concomitant]
     Indication: B-CELL LYMPHOMA
     Dosage: 1500 MG, Q2WK
     Route: 042
     Dates: start: 20130725
  4. DOXORUBICIN [Concomitant]
     Indication: B-CELL LYMPHOMA
     Dosage: 100 MG, Q2WK
     Route: 042
     Dates: start: 20130725
  5. VINCRISTINE [Concomitant]
     Indication: B-CELL LYMPHOMA
     Dosage: 2 MG, Q2WK
     Route: 042
     Dates: start: 20130725
  6. PREDNISONE [Concomitant]
     Indication: B-CELL LYMPHOMA
     Dosage: 100 MG, 6 DAYS/CYCLE
     Route: 048
     Dates: start: 20130717
  7. GRANISETRON [Concomitant]
     Indication: ANTIEMETIC SUPPORTIVE CARE
     Dosage: 1 MG, Q2WK
     Route: 042
  8. POTASSIUM SODIUM HYDROGEN CITRATE [Concomitant]
     Dosage: 3 EL Q2WK
     Route: 048
  9. MESNA [Concomitant]
     Indication: PROPHYLAXIS
     Dosage: 900 MG, Q2WK
     Route: 048
  10. TRIMETHOPRIM SULFAMETHOXAZOLE [Concomitant]
     Indication: PROPHYLAXIS
     Dosage: 1920 MG, 2DW
     Route: 048
  11. ACICLOVIR [Concomitant]
     Indication: PROPHYLAXIS
     Dosage: 1600 MG, DAILY
     Route: 048
  12. LEVOFLOXACIN [Concomitant]
     Indication: PROPHYLAXIS
     Dosage: 500 MG, 7 DAYS EACH CYCLE
     Route: 048
     Dates: start: 20130729
  13. ACETYLSALICYLIC ACID [Concomitant]
     Indication: PROPHYLAXIS
     Dosage: 100 MG, DAILY
     Route: 048
  14. LISINOPRIL [Concomitant]
     Indication: HYPERTENSION
     Dosage: 10 MG, DAILY
     Route: 048

REACTIONS (1)
  - Pulmonary embolism [Recovered/Resolved]
